FAERS Safety Report 7561700-8 (Version None)
Quarter: 2011Q2

REPORT INFORMATION
  Report Type: 
  Country: None (occurrence: None)
  Receive Date: 20110621
  Receipt Date: 20100526
  Transmission Date: 20111010
  Serious: No
  Sender: FDA-Public Use
  Company Number: US-ASTRAZENECA-2010SE24620

PATIENT
  Sex: Female

DRUGS (4)
  1. NEXIUM [Suspect]
     Route: 048
  2. TOPROL-XL [Suspect]
     Route: 048
  3. RHINOCORT [Suspect]
     Route: 045
  4. CRESTOR [Suspect]
     Route: 048

REACTIONS (2)
  - INTERVERTEBRAL DISC PROTRUSION [None]
  - PAIN [None]
